FAERS Safety Report 4305336-0 (Version None)
Quarter: 2004Q1

REPORT INFORMATION
  Report Type: 
  Country: None (occurrence: None)
  Receive Date: 20040226
  Receipt Date: 20030618
  Transmission Date: 20041129
  Serious: No
  Sender: FDA-Public Use
  Company Number: US-BRISTOL-MYERS SQUIBB COMPANY-12305835

PATIENT
  Sex: Male

DRUGS (5)
  1. TAXOL [Suspect]
     Indication: CARCINOMA
     Route: 042
     Dates: start: 20030609, end: 20030609
  2. TAGAMET [Concomitant]
     Indication: PREMEDICATION
     Route: 042
  3. DECADRON [Concomitant]
     Indication: PREMEDICATION
     Route: 042
  4. BENADRYL [Concomitant]
     Indication: PREMEDICATION
     Route: 042
  5. ENDOCET [Concomitant]
     Indication: PREMEDICATION
     Route: 048

REACTIONS (1)
  - INJECTION SITE EXTRAVASATION [None]
